FAERS Safety Report 6639297-6 (Version None)
Quarter: 2010Q1

REPORT INFORMATION
  Report Type: 
  Country: None (occurrence: None)
  Receive Date: 20100315
  Receipt Date: 20100225
  Transmission Date: 20100710
  Serious: Yes (Death)
  Sender: FDA-Public Use
  Company Number: 2010VX000044

PATIENT
  Age: 45 Year
  Sex: Female

DRUGS (9)
  1. DIASTAT [Suspect]
     Indication: DRUG USE FOR UNKNOWN INDICATION
  2. ETHANOL [Suspect]
     Indication: DRUG USE FOR UNKNOWN INDICATION
  3. OXYCODONE [Suspect]
     Indication: DRUG USE FOR UNKNOWN INDICATION
  4. LORATADINE [Suspect]
     Indication: DRUG USE FOR UNKNOWN INDICATION
  5. AMITRIPTYLINE [Suspect]
     Indication: DRUG USE FOR UNKNOWN INDICATION
  6. ATENOLOL [Suspect]
     Indication: DRUG USE FOR UNKNOWN INDICATION
  7. LISINOPRIL [Suspect]
     Indication: DRUG USE FOR UNKNOWN INDICATION
  8. FAMOTIDINE [Suspect]
     Indication: DRUG USE FOR UNKNOWN INDICATION
  9. CITALOPRAM HYDROBROMIDE [Suspect]
     Indication: DRUG USE FOR UNKNOWN INDICATION

REACTIONS (2)
  - DRUG TOXICITY [None]
  - POISONING [None]
